FAERS Safety Report 18739360 (Version 1)
Quarter: 2021Q1

REPORT INFORMATION
  Report Type: Spontaneous
  Country: US (occurrence: US)
  Receive Date: 20210113
  Receipt Date: 20210113
  Transmission Date: 20210419
  Serious: Yes (Other)
  Sender: FDA-Public Use
  Company Number: None

PATIENT
  Age: 80 Year
  Sex: Female
  Weight: 76.2 kg

DRUGS (12)
  1. REMDESIVIR. [Suspect]
     Active Substance: REMDESIVIR
     Indication: COVID-19
     Dosage: ?          OTHER FREQUENCY:ONCE;?
     Route: 042
     Dates: start: 20210104, end: 20210104
  2. ASPIRIN CHEWABLE [Concomitant]
     Active Substance: ASPIRIN
     Dates: start: 20210104, end: 20210109
  3. HEPARIN [Concomitant]
     Active Substance: HEPARIN SODIUM
     Dates: start: 20210104, end: 20210105
  4. IPRATROPIUM NEBULIZER [Concomitant]
     Dates: start: 20210104, end: 20210104
  5. ALBUTEROL NEBULIZER [Concomitant]
     Active Substance: ALBUTEROL
     Dates: start: 20210104, end: 20210104
  6. CHLORTHALIDONE. [Concomitant]
     Active Substance: CHLORTHALIDONE
     Dates: start: 20210104, end: 20210113
  7. FUROSEMIDE. [Concomitant]
     Active Substance: FUROSEMIDE
     Dates: start: 20210104, end: 20210104
  8. LEVETIRACETAM. [Concomitant]
     Active Substance: LEVETIRACETAM
     Dates: start: 20210104, end: 20210113
  9. PANTOPRAZOLE [Concomitant]
     Active Substance: PANTOPRAZOLE
     Dates: start: 20210104, end: 20210113
  10. ATORVASTATIN [Concomitant]
     Active Substance: ATORVASTATIN
     Dates: start: 20210104, end: 20210113
  11. DEXAMETHASONE. [Concomitant]
     Active Substance: DEXAMETHASONE
     Dates: start: 20210104, end: 20210107
  12. SERTRALINE [Concomitant]
     Active Substance: SERTRALINE HYDROCHLORIDE
     Dates: start: 20210104, end: 20210104

REACTIONS (4)
  - Infusion site erythema [None]
  - Infusion site swelling [None]
  - Infusion site extravasation [None]
  - Therapy interrupted [None]

NARRATIVE: CASE EVENT DATE: 20210104
